FAERS Safety Report 11990527 (Version 1)
Quarter: 2016Q1

REPORT INFORMATION
  Report Type: Report from Study
  Country: PL (occurrence: PL)
  Receive Date: 20160202
  Receipt Date: 20160202
  Transmission Date: 20160526
  Serious: Yes (Life-Threatening, Other)
  Sender: FDA-Public Use
  Company Number: PL-GLAXOSMITHKLINE-PL2016013318

PATIENT
  Age: 32 Year
  Sex: Female

DRUGS (25)
  1. DOXORUBICINE [Suspect]
     Active Substance: DOXORUBICIN
     Dosage: 110 MG, SINGLE
     Route: 042
     Dates: start: 20151208, end: 20151208
  2. DEXAVEN [Suspect]
     Active Substance: DEXAMETHASONE
     Dosage: 8 MG, SINGLE
     Route: 042
     Dates: start: 20151208, end: 20151208
  3. EMEND [Suspect]
     Active Substance: APREPITANT
     Dosage: 125 MG, SINGLE
     Route: 048
     Dates: start: 20151228, end: 20151228
  4. RETIGABINE [Suspect]
     Active Substance: EZOGABINE
     Dosage: 200 MG, TID
     Dates: start: 20140401, end: 20140406
  5. RETIGABINE [Suspect]
     Active Substance: EZOGABINE
     Indication: PARTIAL SEIZURES
     Dosage: 600 MG, TID
     Dates: start: 20121127, end: 20140324
  6. DOXORUBICINE [Suspect]
     Active Substance: DOXORUBICIN
     Dosage: 110 MG, SINGLE
     Route: 042
     Dates: start: 20151228, end: 20151228
  7. DEXAVEN [Suspect]
     Active Substance: DEXAMETHASONE
     Indication: CHEMOTHERAPY
     Dosage: 8 MG, SINGLE
     Route: 042
     Dates: start: 20151124, end: 20151124
  8. EMEND [Suspect]
     Active Substance: APREPITANT
     Indication: CHEMOTHERAPY
     Dosage: 125 MG, SINGLE
     Route: 048
     Dates: start: 20151124, end: 20151124
  9. EMEND [Suspect]
     Active Substance: APREPITANT
     Dosage: 80 MG, SINGLE
     Route: 048
     Dates: start: 20151126, end: 20151126
  10. NEULASTA [Suspect]
     Active Substance: PEGFILGRASTIM
     Dosage: 6 MG, SINGLE
     Route: 058
     Dates: start: 20151209, end: 20151209
  11. CYCLOPHOSPHAMIDE. [Suspect]
     Active Substance: CYCLOPHOSPHAMIDE
     Dosage: 1100 MG, SINGLE
     Route: 042
     Dates: start: 20151228, end: 20151228
  12. CYCLOPHOSPHAMIDE. [Suspect]
     Active Substance: CYCLOPHOSPHAMIDE
     Dosage: 1100 MG, SINGLE
     Route: 042
     Dates: start: 20151208, end: 20151208
  13. ONDANSETRON [Suspect]
     Active Substance: ONDANSETRON
     Dosage: 8 MG, SINGLE
     Route: 042
     Dates: start: 20151228, end: 20151228
  14. NEULASTA [Suspect]
     Active Substance: PEGFILGRASTIM
     Indication: CHEMOTHERAPY
     Dosage: 6 MG, SINGLE
     Route: 058
     Dates: start: 20151124, end: 20151124
  15. RETIGABINE [Suspect]
     Active Substance: EZOGABINE
     Dosage: 400 MG, TID
     Dates: start: 20140325, end: 20140331
  16. DOXORUBICINE [Suspect]
     Active Substance: DOXORUBICIN
     Indication: CHEMOTHERAPY
     Dosage: 110 MG, SINGLE
     Route: 042
     Dates: start: 20151124, end: 20151124
  17. ONDANSETRON [Suspect]
     Active Substance: ONDANSETRON
     Dosage: 8 MG, SINGLE
     Route: 042
     Dates: start: 20151208, end: 20151208
  18. TARDYFERON [Suspect]
     Active Substance: FERROUS SULFATE\FOLIC ACID
     Indication: SUPPLEMENTATION THERAPY
     Route: 048
     Dates: start: 20151228
  19. ONDANSETRON [Suspect]
     Active Substance: ONDANSETRON
     Indication: PROPHYLAXIS OF NAUSEA AND VOMITING
     Dosage: 8 MG, SINGLE
     Route: 042
     Dates: start: 20151124, end: 20151124
  20. NEULASTA [Suspect]
     Active Substance: PEGFILGRASTIM
     Dosage: 6 MG, SINGLE
     Route: 058
     Dates: start: 20151229, end: 20151229
  21. DEXAMETASONA [Suspect]
     Active Substance: DEXAMETHASONE
     Indication: CHEMOTHERAPY
     Route: 048
     Dates: start: 20151126, end: 20151127
  22. DEXAMETASONE [Suspect]
     Active Substance: DEXAMETHASONE
     Indication: CHEMOTHERAPY
     Route: 048
     Dates: start: 20151208, end: 20151211
  23. CYCLOPHOSPHAMIDE. [Suspect]
     Active Substance: CYCLOPHOSPHAMIDE
     Indication: CHEMOTHERAPY
     Dosage: 1100 MG, SINGLE
     Route: 042
     Dates: start: 20141124, end: 20151124
  24. DEXAVEN [Suspect]
     Active Substance: DEXAMETHASONE
     Dosage: 12 MG, SINGLE
     Route: 042
     Dates: start: 20151228, end: 20151228
  25. EMEND [Suspect]
     Active Substance: APREPITANT
     Dosage: 125 MG, SINGLE
     Route: 048
     Dates: start: 20151208, end: 20151208

REACTIONS (1)
  - Breast cancer [Not Recovered/Not Resolved]

NARRATIVE: CASE EVENT DATE: 20150915
